FAERS Safety Report 11700238 (Version 1)
Quarter: 2015Q4

REPORT INFORMATION
  Report Type: Spontaneous
  Country: None (occurrence: None)
  Receive Date: 20151104
  Receipt Date: 20151104
  Transmission Date: 20160304
  Serious: Yes (Other)
  Sender: FDA-Public Use
  Company Number: None

PATIENT
  Age: 59 Year
  Sex: Female
  Weight: 65.77 kg

DRUGS (7)
  1. ESTROVEN [Concomitant]
     Active Substance: DIETARY SUPPLEMENT
  2. SYNTHROID [Concomitant]
     Active Substance: LEVOTHYROXINE SODIUM
  3. BACLOFEN 10MG [Suspect]
     Active Substance: BACLOFEN
     Indication: MUSCLE SPASMS
     Dosage: ONE PILL
     Route: 048
     Dates: start: 20151101, end: 20151103
  4. NORCO [Concomitant]
     Active Substance: ACETAMINOPHEN\HYDROCODONE BITARTRATE
  5. IBUPROFEN. [Concomitant]
     Active Substance: IBUPROFEN
  6. 100 FENTANYL [Concomitant]
  7. PREDNISONE. [Concomitant]
     Active Substance: PREDNISONE

REACTIONS (9)
  - Eye swelling [None]
  - Cognitive disorder [None]
  - Swelling face [None]
  - Peripheral swelling [None]
  - Joint swelling [None]
  - Muscle disorder [None]
  - Speech disorder [None]
  - Therapy change [None]
  - Gait disturbance [None]

NARRATIVE: CASE EVENT DATE: 20151102
